FAERS Safety Report 6150661-4 (Version None)
Quarter: 2009Q2

REPORT INFORMATION
  Report Type: 
  Country: None (occurrence: None)
  Receive Date: 20090409
  Receipt Date: 20090403
  Transmission Date: 20091009
  Serious: Yes (Hospitalization, Other)
  Sender: FDA-Public Use
  Company Number: IL-ROXANE LABORATORIES, INC.-2009-RO-00340RO

PATIENT
  Age: 67 Year
  Sex: Male

DRUGS (18)
  1. MORPHINE [Suspect]
     Indication: HYPERAESTHESIA
  2. MORPHINE [Suspect]
  3. MORPHINE [Suspect]
     Route: 042
  4. MORPHINE [Suspect]
     Route: 042
  5. METHOTREXATE [Suspect]
     Indication: RHEUMATOID ARTHRITIS
     Route: 030
  6. MEPERIDINE HCL [Suspect]
     Indication: PAIN
  7. METHYLPREDNISOLONE 4MG TAB [Suspect]
     Indication: RHEUMATOID ARTHRITIS
     Dosage: 10MG
     Route: 048
  8. ROFECOXIB [Suspect]
     Indication: HYPERAESTHESIA
     Dosage: 25MG
  9. OXYCODONE HCL [Suspect]
     Indication: HYPERAESTHESIA
     Dosage: 20MG
  10. OXYCODONE HCL [Suspect]
     Dosage: 80MG
  11. OXYCODONE HCL [Suspect]
     Dosage: 40MG
  12. OXYCODONE HCL [Suspect]
     Dosage: 20MG
  13. VANCOMYCIN HCL [Suspect]
     Indication: ABSCESS
     Dosage: 1G
  14. CEFEPIME [Suspect]
     Indication: ABSCESS
     Dosage: 4G
  15. PROMETHAZINE [Suspect]
     Indication: ANALGESIA
  16. CHLORPROMAZINE [Suspect]
     Indication: ANALGESIA
     Dosage: 37.5MG
     Route: 030
  17. KETAMINE HCL [Suspect]
     Indication: PAIN
     Route: 042
  18. KETAMINE HCL [Suspect]
     Route: 042

REACTIONS (5)
  - ABSCESS [None]
  - ALLODYNIA [None]
  - DRUG INEFFECTIVE [None]
  - HYPERAESTHESIA [None]
  - SOMNOLENCE [None]
